FAERS Safety Report 9537052 (Version 1)
Quarter: 2013Q3

REPORT INFORMATION
  Report Type: Spontaneous
  Country: US (occurrence: US)
  Receive Date: 20130919
  Receipt Date: 20130919
  Transmission Date: 20140515
  Serious: No
  Sender: FDA-Public Use
  Company Number: US-PFIZER INC-2013269191

PATIENT
  Age: 57 Year
  Sex: Female
  Weight: 88.89 kg

DRUGS (3)
  1. NEURONTIN [Suspect]
     Indication: BRAIN NEOPLASM
     Dosage: 600 MG, 3X/DAY
     Dates: start: 2013
  2. LYRICA [Suspect]
     Indication: BRAIN NEOPLASM
     Dosage: 75 MG, 2X/DAY
     Dates: start: 2013, end: 2013
  3. ENALAPRIL [Concomitant]
     Indication: HYPERTENSION
     Dosage: 10 MG, 1X/DAY

REACTIONS (2)
  - Off label use [Unknown]
  - Therapeutic response unexpected [Unknown]
